FAERS Safety Report 8850851 (Version 1)
Quarter: 2012Q4

REPORT INFORMATION
  Report Type: 
  Country: US (occurrence: US)
  Receive Date: 20121019
  Receipt Date: 20121019
  Transmission Date: 20130627
  Serious: No
  Sender: FDA-Public Use
  Company Number: US-B.I. PHARMACEUTICALS,INC./RIDGEFIELD-2012-BP-24910BP

PATIENT
  Age: 84 None
  Sex: Male
  Weight: 71 kg

DRUGS (10)
  1. DULCOLAX TABLETS [Suspect]
     Indication: CONSTIPATION
     Route: 048
     Dates: start: 2006
  2. FLOMAX CAPSULES [Suspect]
     Indication: URINARY TRACT DISORDER
     Dosage: 0.4 mg
     Route: 048
     Dates: start: 2006
  3. TRAVESTIN [Concomitant]
     Indication: EYE DISORDER
     Dates: start: 1995
  4. AZOPT [Concomitant]
     Indication: EYE DISORDER
     Dates: start: 2002
  5. TIMOLOL [Concomitant]
     Indication: EYE DISORDER
     Dates: start: 2002
  6. ACCOLATE [Concomitant]
     Indication: ASTHMA
     Route: 048
     Dates: start: 2000
  7. HYDROCODONE [Concomitant]
     Indication: ARTHRALGIA
     Route: 048
  8. HYDROCODONE [Concomitant]
     Indication: HEADACHE
  9. HYDROCODONE [Concomitant]
     Indication: NECK PAIN
  10. HYDROCODONE [Concomitant]
     Indication: EYE PAIN

REACTIONS (7)
  - Constipation [Not Recovered/Not Resolved]
  - Asthenia [Not Recovered/Not Resolved]
  - Aphagia [Not Recovered/Not Resolved]
  - Cardiac disorder [Not Recovered/Not Resolved]
  - Hypertension [Recovered/Resolved]
  - Insomnia [Not Recovered/Not Resolved]
  - Gait disturbance [Not Recovered/Not Resolved]
